FAERS Safety Report 9615151 (Version 2)
Quarter: 2013Q4

REPORT INFORMATION
  Report Type: Spontaneous
  Country: US (occurrence: US)
  Receive Date: 20131011
  Receipt Date: 20131011
  Transmission Date: 20140711
  Serious: No
  Sender: FDA-Public Use
  Company Number: US-PURDUE-USA-2013-0097413

PATIENT
  Sex: Female

DRUGS (2)
  1. BUTRANS [Suspect]
     Indication: FIBROMYALGIA
     Dosage: 5 MCG/HR, UNK
     Route: 062
     Dates: start: 20121231, end: 201301
  2. IBUPROFEN [Concomitant]
     Indication: PAIN

REACTIONS (6)
  - Pain [Unknown]
  - Feeling abnormal [Unknown]
  - Application site pruritus [Unknown]
  - Pruritus generalised [Unknown]
  - Application site rash [Unknown]
  - Somnolence [Unknown]
